FAERS Safety Report 14751694 (Version 6)
Quarter: 2020Q4

REPORT INFORMATION
  Report Type: Report from Study
  Country: KR (occurrence: KR)
  Receive Date: 20180412
  Receipt Date: 20201113
  Transmission Date: 20210113
  Serious: Yes (Hospitalization)
  Sender: FDA-Public Use
  Company Number: KR-CELGENEUS-KOR-20180204781

PATIENT
  Age: 61 Year
  Sex: Female
  Weight: 61.4 kg

DRUGS (42)
  1. LEVOCETIRIZINE [Concomitant]
     Active Substance: LEVOCETIRIZINE
     Indication: PRODUCT USED FOR UNKNOWN INDICATION
     Route: 048
     Dates: start: 20180131, end: 20180206
  2. ANTIS [Concomitant]
     Indication: MUCOSAL INFLAMMATION
     Route: 065
  3. CELBESTA [Concomitant]
     Indication: OEDEMA PERIPHERAL
     Route: 065
  4. VIMOVO [Concomitant]
     Active Substance: ESOMEPRAZOLE MAGNESIUM\NAPROXEN
     Indication: OEDEMA PERIPHERAL
     Route: 065
  5. ABRAXANE [Suspect]
     Active Substance: PACLITAXEL
     Dosage: 10.7143 MICROGRAM/SQ. METER
     Route: 041
     Dates: start: 20180213
  6. PEMBROLIZUMAB (MK-3475) [Suspect]
     Active Substance: PEMBROLIZUMAB
     Indication: TRIPLE NEGATIVE BREAST CANCER
     Dosage: 200 MILLIGRAM
     Route: 042
     Dates: start: 20161214, end: 20180110
  7. LEODASE [Concomitant]
     Indication: MUCOSAL INFLAMMATION
     Dosage: 3 DOSAGE FORMS
     Route: 048
     Dates: start: 20180131, end: 20180206
  8. DETHASONE [Concomitant]
     Indication: CELLULITIS
     Route: 065
     Dates: start: 20180208
  9. ANYTAL [Concomitant]
     Indication: DIARRHOEA
     Route: 065
  10. NORVASC [Concomitant]
     Active Substance: AMLODIPINE BESYLATE
     Indication: HYPERTENSION
     Dosage: 5 MILLIGRAM
     Route: 048
     Dates: start: 201001
  11. METFORMIN HYDROCHLORIDE. [Concomitant]
     Active Substance: METFORMIN HYDROCHLORIDE
     Dosage: 5 MILLIGRAM
     Route: 048
     Dates: start: 201001
  12. CLETAMIN [Concomitant]
     Indication: MUCOSAL INFLAMMATION
     Route: 065
  13. ABRAXANE [Suspect]
     Active Substance: PACLITAXEL
     Dosage: 100 MILLIGRAM/SQ. METER
     Route: 041
     Dates: start: 20180124, end: 20180124
  14. TANTUM [Concomitant]
     Active Substance: BENZYDAMINE HYDROCHLORIDE
     Indication: MUCOSAL INFLAMMATION
     Dosage: 45 MILLILITER
     Route: 061
     Dates: start: 20180131, end: 20180206
  15. EDONAL [Concomitant]
     Indication: MUCOSAL INFLAMMATION
     Dosage: 3 DOSAGE FORMS
     Route: 048
     Dates: start: 20180131, end: 20180206
  16. PENIRAMIN [Concomitant]
     Indication: PRURITUS
     Route: 065
  17. PEMBROLIZUMAB (MK-3475) [Suspect]
     Active Substance: PEMBROLIZUMAB
     Dosage: 200 MILLIGRAM
     Route: 041
     Dates: start: 20180202, end: 20180202
  18. METFORMIN HYDROCHLORIDE. [Concomitant]
     Active Substance: METFORMIN HYDROCHLORIDE
     Indication: HYPERLIPIDAEMIA
     Route: 048
     Dates: start: 201012
  19. ENTELON [Concomitant]
     Indication: OEDEMA PERIPHERAL
     Dosage: 300 MILLIGRAM
     Route: 048
     Dates: start: 20171219
  20. CENOVA [Concomitant]
     Indication: MUCOSAL INFLAMMATION
     Dosage: 1 DOSAGE FORMS
     Route: 048
     Dates: start: 20180131, end: 20180206
  21. MACPERAN [Concomitant]
     Active Substance: METOCLOPRAMIDE HYDROCHLORIDE
     Indication: PROPHYLAXIS
     Route: 065
  22. ABRAXANE [Suspect]
     Active Substance: PACLITAXEL
     Dosage: 10.7143 MICROGRAM/SQ. METER
     Route: 041
     Dates: end: 20180509
  23. ROSUVASTATIN. [Concomitant]
     Active Substance: ROSUVASTATIN
     Route: 048
     Dates: start: 20170705, end: 20180830
  24. AMLODIPINE BESYLATE. [Concomitant]
     Active Substance: AMLODIPINE BESYLATE
     Indication: DIABETES MELLITUS
  25. PAN B COMP [Concomitant]
     Indication: DIARRHOEA
     Route: 065
  26. PEMBROLIZUMAB (MK-3475) [Suspect]
     Active Substance: PEMBROLIZUMAB
     Dosage: 200 MILLIGRAM
     Route: 041
     Dates: start: 20180221, end: 20180314
  27. FURIX [Concomitant]
     Indication: OEDEMA PERIPHERAL
     Dosage: 20 MILLIGRAM
     Route: 048
     Dates: start: 20171208
  28. ALMAGEL [Concomitant]
     Indication: PROPHYLAXIS
     Dosage: 3 DOSAGE FORMS
     Route: 048
     Dates: start: 20180131, end: 20180206
  29. DEXILANT [Concomitant]
     Active Substance: DEXLANSOPRAZOLE
     Indication: PROPHYLAXIS
     Dosage: 1 DOSAGE FORMS
     Route: 048
     Dates: start: 20180131
  30. HEXAMEDINE [Concomitant]
     Indication: MUCOSAL INFLAMMATION
     Route: 065
  31. AMLODIPINE BESYLATE. [Concomitant]
     Active Substance: AMLODIPINE BESYLATE
     Indication: HYPERTENSION
     Route: 048
     Dates: start: 201001
  32. LOPERAMIDE [Concomitant]
     Active Substance: LOPERAMIDE
     Indication: DIARRHOEA
     Route: 065
  33. MEGACE [Concomitant]
     Active Substance: MEGESTROL ACETATE
     Indication: DECREASED APPETITE
     Route: 065
  34. TACENOL [Concomitant]
     Indication: PROPHYLAXIS
     Route: 065
  35. TACENOL [Concomitant]
     Indication: PROPHYLAXIS
  36. ABRAXANE [Suspect]
     Active Substance: PACLITAXEL
     Indication: TRIPLE NEGATIVE BREAST CANCER
     Dosage: 100 MILLIGRAM/SQ. METER
     Route: 041
     Dates: start: 20161214, end: 20180117
  37. ABRAXANE [Suspect]
     Active Substance: PACLITAXEL
     Dosage: 10.7143 MICROGRAM/SQ. METER
     Route: 041
     Dates: end: 20180321
  38. PEMBROLIZUMAB (MK-3475) [Suspect]
     Active Substance: PEMBROLIZUMAB
     Dosage: 200 MILLIGRAM
     Route: 041
     Dates: start: 20180404, end: 20190116
  39. ROSUVASTATIN. [Concomitant]
     Active Substance: ROSUVASTATIN
     Indication: OEDEMA PERIPHERAL
     Route: 048
     Dates: start: 201012
  40. SPIRONOLACTONE. [Concomitant]
     Active Substance: SPIRONOLACTONE
     Indication: PRODUCT USED FOR UNKNOWN INDICATION
     Route: 048
     Dates: start: 20170705, end: 20180830
  41. LYRICA [Concomitant]
     Active Substance: PREGABALIN
     Indication: PERIPHERAL SENSORY NEUROPATHY
     Dosage: 600 MILLIGRAM
     Route: 048
     Dates: start: 20170712
  42. LACIDOFIL [Concomitant]
     Active Substance: LACTOBACILLUS ACIDOPHILUS\LACTOBACILLUS RHAMNOSUS
     Indication: DIARRHOEA
     Route: 065

REACTIONS (1)
  - Drug eruption [Recovered/Resolved]

NARRATIVE: CASE EVENT DATE: 20180204
